FAERS Safety Report 5586134-7 (Version None)
Quarter: 2008Q1

REPORT INFORMATION
  Report Type: 
  Country: None (occurrence: None)
  Receive Date: 20080104
  Receipt Date: 20071221
  Transmission Date: 20080703
  Serious: Yes (Other)
  Sender: FDA-Public Use
  Company Number: 2007AP001524

PATIENT
  Age: 29 Year
  Sex: Female

DRUGS (3)
  1. TERBINAFINE HCL [Suspect]
     Dosage: 250 MG; PO
     Route: 048
     Dates: start: 20070901, end: 20071004
  2. CYPROTERONE ACETATE (CYPROTERONE ACETATE) [Concomitant]
  3. ETHINYL ESTRADIOL TAB [Concomitant]

REACTIONS (5)
  - ANOREXIA [None]
  - FATIGUE [None]
  - PRURITUS [None]
  - SYNCOPE [None]
  - URTICARIA [None]
